FAERS Safety Report 5633106-X (Version None)
Quarter: 2008Q1

REPORT INFORMATION
  Report Type: 
  Country: None (occurrence: None)
  Receive Date: 20080215
  Receipt Date: 20080204
  Transmission Date: 20080703
  Serious: Yes (Other)
  Sender: FDA-Public Use
  Company Number: 2008S1001793

PATIENT
  Age: 70 Year
  Sex: Male

DRUGS (1)
  1. ACYCLOVIR [Suspect]
     Indication: HERPES ZOSTER
     Dosage: 500 MG; DAILY

REACTIONS (11)
  - AGITATION [None]
  - AMNESIA [None]
  - CONFUSIONAL STATE [None]
  - DELIRIUM [None]
  - DISORIENTATION [None]
  - HAEMODIALYSIS [None]
  - HALLUCINATIONS, MIXED [None]
  - INSOMNIA [None]
  - NEUROTOXICITY [None]
  - PSYCHOTIC DISORDER [None]
  - PYREXIA [None]
